FAERS Safety Report 23614112 (Version 1)
Quarter: 2024Q1

REPORT INFORMATION
  Report Type: Report from Study
  Country: CN (occurrence: CN)
  Receive Date: 20240310
  Receipt Date: 20240310
  Transmission Date: 20240409
  Serious: Yes (Life-Threatening, Hospitalization, Other)
  Sender: FDA-Public Use
  Company Number: CN-ABBVIE-5651971

PATIENT
  Age: 29 Year
  Sex: Female
  Weight: 52 kg

DRUGS (5)
  1. RINVOQ [Suspect]
     Active Substance: UPADACITINIB
     Indication: Dermatitis atopic
     Dosage: FORM STRENGTH: 15 MILLIGRAM
     Route: 048
     Dates: start: 20240115
  2. LORATADINE [Concomitant]
     Active Substance: LORATADINE
     Indication: Dermatitis atopic
     Dosage: 10 MILLIGRAM
     Route: 048
     Dates: start: 20240115
  3. UREA [Concomitant]
     Active Substance: UREA
     Indication: Dermatitis atopic
     Dosage: 3 GRAM
     Route: 062
     Dates: start: 20240115
  4. CRISABOROLE [Concomitant]
     Active Substance: CRISABOROLE
     Indication: Dermatitis atopic
     Dosage: 2 GRAM
     Route: 062
     Dates: start: 20240115
  5. AMINOPHYLLINE [Concomitant]
     Active Substance: AMINOPHYLLINE
     Indication: Dermatitis atopic
     Dosage: 0.25 GRAM
     Route: 041
     Dates: start: 20240128, end: 20240129

REACTIONS (2)
  - Pneumonia [Recovered/Resolved]
  - Asthma [Recovering/Resolving]

NARRATIVE: CASE EVENT DATE: 20240128
